FAERS Safety Report 6375783-4 (Version None)
Quarter: 2009Q3

REPORT INFORMATION
  Report Type: 
  Country: None (occurrence: None)
  Receive Date: 20090924
  Receipt Date: 20090923
  Transmission Date: 20100115
  Serious: Yes (Hospitalization)
  Sender: FDA-Public Use
  Company Number: BE-WYE-G04496609

PATIENT

DRUGS (1)
  1. TYGACIL [Suspect]
     Dosage: NOT PROVIDED

REACTIONS (1)
  - RENAL TUBULAR DISORDER [None]
